FAERS Safety Report 22211196 (Version 3)
Quarter: 2023Q4

REPORT INFORMATION
  Report Type: Report from Study
  Country: US (occurrence: US)
  Receive Date: 20230414
  Receipt Date: 20231009
  Transmission Date: 20240109
  Serious: Yes (Hospitalization, Other)
  Sender: FDA-Public Use
  Company Number: US-UCBSA-2023018935

PATIENT
  Sex: Male
  Weight: 103 kg

DRUGS (6)
  1. FINTEPLA [Suspect]
     Active Substance: FENFLURAMINE
     Indication: Severe myoclonic epilepsy of infancy
     Dosage: 4 MILLILITER, 2X/DAY (BID)
  2. FINTEPLA [Suspect]
     Active Substance: FENFLURAMINE
     Dosage: 0.2/2 MG/KG/DAY
     Dates: start: 20210706
  3. FINTEPLA [Suspect]
     Active Substance: FENFLURAMINE
     Dosage: 0.159 MG/KG/DAY
  4. FINTEPLA [Suspect]
     Active Substance: FENFLURAMINE
     Dosage: 0.17 MG/KG/DAY
  5. FINTEPLA [Suspect]
     Active Substance: FENFLURAMINE
     Dosage: 0.15 MG/KG/DAY
  6. FINTEPLA [Suspect]
     Active Substance: FENFLURAMINE
     Dosage: 5.1 MILLILITER, 2X/DAY (BID)

REACTIONS (3)
  - Scoliosis surgery [Not Recovered/Not Resolved]
  - Tricuspid valve incompetence [Not Recovered/Not Resolved]
  - Scoliosis [Not Recovered/Not Resolved]

NARRATIVE: CASE EVENT DATE: 20230101
